FAERS Safety Report 5918410-X (Version None)
Quarter: 2008Q4

REPORT INFORMATION
  Report Type: 
  Country: None (occurrence: None)
  Receive Date: 20081010
  Receipt Date: 20081002
  Transmission Date: 20090506
  Serious: Yes (Life-Threatening, Other)
  Sender: FDA-Public Use
  Company Number: 1000000438

PATIENT
  Age: 65 Year
  Sex: Female

DRUGS (4)
  1. ESCITALOPRAM [Suspect]
     Indication: DEPRESSION
     Dosage: 10 MG (10 MG, 1 IN 1 D)
  2. LINEZOLID [Suspect]
     Dosage: 1200 MG (600 MG, 1 IN 12
  3. METOCLOPRAMIDE [Concomitant]
  4. ONDANSETRON (4 MILLIGRAM) [Concomitant]

REACTIONS (12)
  - CULTURE URINE POSITIVE [None]
  - DIABETES MELLITUS INADEQUATE CONTROL [None]
  - DIALYSIS [None]
  - DRUG INTERACTION [None]
  - ENTEROCOCCAL INFECTION [None]
  - GRAND MAL CONVULSION [None]
  - HYPONATRAEMIA [None]
  - INCORRECT DOSE ADMINISTERED [None]
  - PYELONEPHRITIS [None]
  - RENAL FAILURE ACUTE [None]
  - SEROTONIN SYNDROME [None]
  - UROSEPSIS [None]
